FAERS Safety Report 10784721 (Version 1)
Quarter: 2015Q1

REPORT INFORMATION
  Report Type: Spontaneous
  Country: GB (occurrence: GB)
  Receive Date: 20150211
  Receipt Date: 20150211
  Transmission Date: 20150721
  Serious: Yes (Other)
  Sender: FDA-Public Use
  Company Number: GB-009507513-1502GBR004105

PATIENT
  Age: 47 Year
  Sex: Male

DRUGS (3)
  1. DEXAMETHASONE TABLETS BP 500MCG [Suspect]
     Active Substance: DEXAMETHASONE
     Indication: PLASMA CELL MYELOMA
     Dosage: UNK
     Route: 065
  2. VELCADE [Suspect]
     Active Substance: BORTEZOMIB
     Indication: PLASMA CELL MYELOMA
     Dosage: UNK
     Route: 065
  3. THALIDOMIDE [Suspect]
     Active Substance: THALIDOMIDE
     Indication: PLASMA CELL MYELOMA
     Dosage: 150 MG, UNKNOWN
     Route: 065

REACTIONS (4)
  - Back pain [Unknown]
  - Gravitational oedema [Unknown]
  - Nausea [Unknown]
  - Headache [Unknown]
